FAERS Safety Report 17943239 (Version 1)
Quarter: 2020Q2

REPORT INFORMATION
  Report Type: Spontaneous
  Country: US (occurrence: US)
  Receive Date: 20200625
  Receipt Date: 20200625
  Transmission Date: 20200714
  Serious: No
  Sender: FDA-Public Use
  Company Number: US-TEVA-2020-US-1792879

PATIENT
  Sex: Female

DRUGS (4)
  1. SEROQUEL [Concomitant]
     Active Substance: QUETIAPINE FUMARATE
     Dosage: AT BEDTIME
  2. TOPAMAX [Concomitant]
     Active Substance: TOPIRAMATE
  3. METHOTREXATE. [Concomitant]
     Active Substance: METHOTREXATE
     Dosage: FORM OF ADMIN: INJECTABLE
  4. BUPRENORPHINE. [Suspect]
     Active Substance: BUPRENORPHINE
     Indication: PAIN
     Route: 060

REACTIONS (1)
  - Drug ineffective [Unknown]
